FAERS Safety Report 11530759 (Version 3)
Quarter: 2016Q1

REPORT INFORMATION
  Report Type: Spontaneous
  Country: BE (occurrence: BE)
  Receive Date: 20150921
  Receipt Date: 20160129
  Transmission Date: 20160525
  Serious: Yes (Other)
  Sender: FDA-Public Use
  Company Number: BE-PFIZER INC-2015313800

PATIENT
  Age: 25 Year
  Sex: Male

DRUGS (4)
  1. PIROXICAM. [Concomitant]
     Active Substance: PIROXICAM
     Indication: SPONDYLITIS
     Dosage: 20 MG DAILY
     Dates: start: 2003
  2. SULFASALAZINE. [Concomitant]
     Active Substance: SULFASALAZINE
  3. DRUG, UNSPECIFIED [Suspect]
     Active Substance: UNSPECIFIED INGREDIENT
     Dosage: 16 MG DAILY
     Dates: start: 2006
  4. ETANERCEPT [Concomitant]
     Active Substance: ETANERCEPT
     Indication: SPONDYLITIS
     Dosage: 50 MG, ONCE A WEEK
     Route: 058
     Dates: start: 200305

REACTIONS (1)
  - Polychondritis [Recovered/Resolved]
